FAERS Safety Report 4674045-0 (Version None)
Quarter: 2005Q2

REPORT INFORMATION
  Report Type: 
  Country: None (occurrence: None)
  Receive Date: 20050525
  Receipt Date: 20050513
  Transmission Date: 20051028
  Serious: Yes (Hospitalization)
  Sender: FDA-Public Use
  Company Number: JP-2005-007701

PATIENT
  Sex: 0

DRUGS (2)
  1. BETASERON [Suspect]
     Indication: MULTIPLE SCLEROSIS
     Dosage: 8 MIU, EVERY 2D, SUBCUTANEOUS
     Route: 058
  2. THEOPHYLLINE [Suspect]
     Indication: ASTHMA

REACTIONS (7)
  - DRUG INTERACTION [None]
  - DRUG TOXICITY [None]
  - EXCITABILITY [None]
  - HEADACHE [None]
  - HYPOKALAEMIA [None]
  - NAUSEA [None]
  - TREMOR [None]
